FAERS Safety Report 11293483 (Version 1)
Quarter: 2015Q3

REPORT INFORMATION
  Report Type: Spontaneous
  Country: US (occurrence: US)
  Receive Date: 20150722
  Receipt Date: 20150722
  Transmission Date: 20151125
  Serious: No
  Sender: FDA-Public Use
  Company Number: US-SHIRE-US201508658

PATIENT
  Sex: Female

DRUGS (4)
  1. KEPPRA [Concomitant]
     Active Substance: LEVETIRACETAM
     Indication: EPILEPSY
     Dosage: UNK, UNKNOWN
     Route: 065
  2. VYVANSE [Suspect]
     Active Substance: LISDEXAMFETAMINE DIMESYLATE
     Indication: ATTENTION DEFICIT/HYPERACTIVITY DISORDER
     Dosage: 20 MG, UNKNOWN
     Route: 048
  3. VYVANSE [Suspect]
     Active Substance: LISDEXAMFETAMINE DIMESYLATE
     Dosage: UNK (30 MG OR 40 MG), OTHER (WHEN SHE HAS AN EXAM)
     Route: 048
  4. ZONEGRAN [Concomitant]
     Active Substance: ZONISAMIDE
     Indication: EPILEPSY
     Dosage: UNK, UNKNOWN
     Route: 065

REACTIONS (2)
  - Disturbance in attention [Not Recovered/Not Resolved]
  - Drug dose omission [Not Recovered/Not Resolved]

NARRATIVE: CASE EVENT DATE: 2015
